FAERS Safety Report 24439581 (Version 1)
Quarter: 2024Q4

REPORT INFORMATION
  Report Type: Spontaneous
  Country: US (occurrence: None)
  Receive Date: 20241015
  Receipt Date: 20241015
  Transmission Date: 20250115
  Serious: Yes (Disabling)
  Sender: Public
  Company Number: None

PATIENT
  Age: 48 Year
  Sex: Male
  Weight: 87.75 kg

DRUGS (5)
  1. INVEGA SUSTENNA [Suspect]
     Active Substance: PALIPERIDONE PALMITATE
     Indication: Bipolar disorder
     Dosage: FREQUENCY : ONCE;?
     Route: 030
     Dates: start: 20240326, end: 20240402
  2. INVEGA SUSTENNA [Suspect]
     Active Substance: PALIPERIDONE PALMITATE
     Indication: Bipolar disorder
     Dosage: FREQUENCY : ONCE;?
     Route: 030
     Dates: start: 20240326, end: 20240402
  3. XANAX [Concomitant]
     Active Substance: ALPRAZOLAM
  4. VITAMINS [Concomitant]
     Active Substance: VITAMINS
  5. OMEGA 3 [Concomitant]
     Active Substance: CAPSAICIN

REACTIONS (31)
  - Weight decreased [None]
  - Muscle disorder [None]
  - Blood prolactin increased [None]
  - Erectile dysfunction [None]
  - Semen volume decreased [None]
  - Weight increased [None]
  - Insulin resistance [None]
  - Metabolic syndrome [None]
  - Bone density decreased [None]
  - Hypersomnia [None]
  - Bedridden [None]
  - Insomnia [None]
  - Lip disorder [None]
  - Drooling [None]
  - Tinnitus [None]
  - Hypoaesthesia oral [None]
  - Tooth disorder [None]
  - Hypoaesthesia [None]
  - Headache [None]
  - Feeling abnormal [None]
  - Liver injury [None]
  - Blood pressure diastolic increased [None]
  - Decreased interest [None]
  - Emotional disorder [None]
  - Suicidal ideation [None]
  - Apathy [None]
  - Depression [None]
  - Brain injury [None]
  - Malaise [None]
  - Fear [None]
  - Impaired work ability [None]

NARRATIVE: CASE EVENT DATE: 20240408
